FAERS Safety Report 5598735-0 (Version None)
Quarter: 2008Q1

REPORT INFORMATION
  Report Type: 
  Country: None (occurrence: None)
  Receive Date: 20080122
  Receipt Date: 20080110
  Transmission Date: 20080703
  Serious: Yes (Hospitalization)
  Sender: FDA-Public Use
  Company Number: US-KINGPHARMUSA00001-K200701650

PATIENT

DRUGS (7)
  1. ALTACE [Suspect]
     Indication: CARDIAC FAILURE
     Dosage: 10 MG, QD
     Route: 048
     Dates: start: 20071001, end: 20071125
  2. DIGITOXIN INJ [Suspect]
     Dosage: .05 MG, QD
     Route: 048
     Dates: end: 20071125
  3. VENTOLIN [Concomitant]
     Dosage: 91 UG, QOD
  4. SELO-ZOK [Concomitant]
     Dosage: 70 MG, QD
     Route: 048
  5. ALBYL-E [Concomitant]
     Dosage: 75 MG, QD
     Route: 048
  6. FURIX [Concomitant]
     Dosage: 40+20 MG, QD
     Route: 048
  7. TRIOBE /01079901/ [Concomitant]
     Dosage: 1 TAB, UNK
     Route: 048

REACTIONS (6)
  - BLOOD CREATININE INCREASED [None]
  - BLOOD POTASSIUM INCREASED [None]
  - BLOOD PRESSURE DECREASED [None]
  - BRADYCARDIA [None]
  - RENAL FAILURE [None]
  - TACHYCARDIA [None]
